FAERS Safety Report 6516891-4 (Version None)
Quarter: 2009Q4

REPORT INFORMATION
  Report Type: 
  Country: None (occurrence: None)
  Receive Date: 20091223
  Receipt Date: 20091216
  Transmission Date: 20100525
  Serious: Yes (Hospitalization)
  Sender: FDA-Public Use
  Company Number: CH-NAPPMUNDI-DEU-2009-0005770

PATIENT
  Sex: Female

DRUGS (4)
  1. MST [Suspect]
     Indication: PAIN
     Dosage: 40 MG, TID
     Route: 048
  2. RIMSTAR [Suspect]
     Indication: TUBERCULOSIS
     Dosage: UNK
     Route: 048
     Dates: start: 20090601, end: 20091001
  3. SERESTA [Suspect]
     Indication: ANXIETY DISORDER
     Dosage: 15 MG, BID
     Route: 048
  4. RIVOTRIL [Suspect]
     Indication: ANXIETY DISORDER
     Dosage: 3 MG, DAILY
     Route: 048

REACTIONS (3)
  - DRUG INEFFECTIVE [None]
  - INSOMNIA [None]
  - MUSCULOSKELETAL PAIN [None]
